FAERS Safety Report 9450318 (Version 1)
Quarter: 2013Q3

REPORT INFORMATION
  Report Type: Report from Study
  Country: BR (occurrence: BR)
  Receive Date: 20130809
  Receipt Date: 20130809
  Transmission Date: 20140515
  Serious: Yes (Hospitalization, Other)
  Sender: FDA-Public Use
  Company Number: PHHY2013BR085391

PATIENT
  Sex: Female
  Weight: 50 kg

DRUGS (8)
  1. EXELON [Suspect]
     Dosage: 1 DF, QD (AT NIGHT)
  2. EXELON [Suspect]
     Dosage: 1 DF, QD (AT NIGHT)
  3. SOMALGIN CARDIO [Concomitant]
     Dosage: UNK UKN, UNK
  4. REUQUINOL [Concomitant]
     Dosage: UNK UKN, UNK
  5. SERTRALINE [Concomitant]
     Dosage: UNK UKN, UNK
  6. NAPRIX [Concomitant]
     Indication: BLOOD PRESSURE ABNORMAL
     Dosage: UNK UKN, UNK
  7. SINVASMAX [Concomitant]
     Dosage: UNK UKN, UNK
  8. ALENIA                             /01538101/ [Concomitant]
     Dosage: UNK UKN, BID

REACTIONS (11)
  - Asthmatic crisis [Unknown]
  - Cough [Not Recovered/Not Resolved]
  - Chest discomfort [Unknown]
  - Bronchitis [Unknown]
  - Dyspnoea [Unknown]
  - Dementia Alzheimer^s type [Unknown]
  - Pollakiuria [Recovering/Resolving]
  - Nervousness [Unknown]
  - Underweight [Unknown]
  - Aggression [Unknown]
  - Confusional state [Not Recovered/Not Resolved]
